FAERS Safety Report 17983875 (Version 1)
Quarter: 2020Q3

REPORT INFORMATION
  Report Type: Spontaneous
  Country: GT (occurrence: GT)
  Receive Date: 20200706
  Receipt Date: 20200706
  Transmission Date: 20201103
  Serious: Yes (Other)
  Sender: FDA-Public Use
  Company Number: NVSC2020GT189100

PATIENT
  Sex: Male

DRUGS (1)
  1. GLIVEC [Suspect]
     Active Substance: IMATINIB MESYLATE
     Indication: CHRONIC MYELOID LEUKAEMIA
     Dosage: 600 MG (1 X 400MG + 2 X 100MG TABLETS)
     Route: 065

REACTIONS (4)
  - SARS-CoV-2 test positive [Unknown]
  - Pyrexia [Unknown]
  - Ageusia [Unknown]
  - Anosmia [Unknown]
